FAERS Safety Report 7474571-5 (Version None)
Quarter: 2011Q2

REPORT INFORMATION
  Report Type: 
  Country: None (occurrence: None)
  Receive Date: 20110503
  Receipt Date: 20110418
  Transmission Date: 20111010
  Serious: Yes (Other)
  Sender: FDA-Public Use
  Company Number: 2011AP000765

PATIENT
  Age: 71 Year
  Sex: Male

DRUGS (3)
  1. MACROGOL 3350 (MACROGOL 3350) [Concomitant]
  2. OMEPRAZOLE [Suspect]
     Indication: PRODUCT USED FOR UNKNOWN INDICATION
     Dosage: 20 MG;CAP;PO
     Route: 048
  3. ACETYLSALICYLIC ACID (ACETYLSALICYLIC ACID) [Concomitant]

REACTIONS (2)
  - MALAISE [None]
  - HAEMATEMESIS [None]
